FAERS Safety Report 5495476-5 (Version None)
Quarter: 2007Q4

REPORT INFORMATION
  Report Type: 
  Country: None (occurrence: None)
  Receive Date: 20071023
  Receipt Date: 20071011
  Transmission Date: 20080405
  Serious: Yes (Hospitalization)
  Sender: FDA-Public Use
  Company Number: 238725K07USA

PATIENT
  Age: 48 Year
  Sex: Female

DRUGS (11)
  1. REBIF [Suspect]
     Indication: MULTIPLE SCLEROSIS
     Dosage: 22 MCG, 3 IN 1 WEEKS, SUBCUTANEOUS
     Route: 058
     Dates: start: 20070514
  2. TRAZODONE HCL [Concomitant]
  3. LANTUS [Concomitant]
  4. LYRICA [Concomitant]
  5. ACTOS [Concomitant]
  6. NEXIUM [Concomitant]
  7. LISINOPRIL [Concomitant]
  8. CRESTOR [Concomitant]
  9. GLIPIZIDE [Concomitant]
  10. SPIRONOLACTONE [Concomitant]
  11. ASPIRIN [Concomitant]

REACTIONS (2)
  - TRANSIENT ISCHAEMIC ATTACK [None]
  - TREMOR [None]
